FAERS Safety Report 9907136 (Version 2)
Quarter: 2014Q1

REPORT INFORMATION
  Report Type: Spontaneous
  Country: US (occurrence: US)
  Receive Date: 20140218
  Receipt Date: 20140318
  Transmission Date: 20141002
  Serious: Yes (Death, Hospitalization)
  Sender: FDA-Public Use
  Company Number: US-PFIZER INC-2014044972

PATIENT
  Age: 67 Year
  Sex: Male

DRUGS (1)
  1. INLYTA [Suspect]
     Indication: RENAL CELL CARCINOMA
     Dosage: 5 MG, 2X/DAY
     Route: 048
     Dates: start: 20140205, end: 20140208

REACTIONS (6)
  - Death [Fatal]
  - Haemorrhage [Unknown]
  - Fall [Unknown]
  - Head injury [Unknown]
  - Asthenia [Unknown]
  - Vomiting [Unknown]
